FAERS Safety Report 9006099 (Version 1)
Quarter: 2013Q1

REPORT INFORMATION
  Report Type: Spontaneous
  Country: US (occurrence: US)
  Receive Date: 20130109
  Receipt Date: 20130109
  Transmission Date: 20140127
  Serious: Yes (Other)
  Sender: FDA-Public Use
  Company Number: PHEH2013US000669

PATIENT
  Sex: Female

DRUGS (7)
  1. GILENYA [Suspect]
     Indication: MULTIPLE SCLEROSIS
     Dosage: 0.5 MG, QD
     Route: 048
     Dates: start: 20110113
  2. ATIVAN [Concomitant]
  3. CRESTOR [Concomitant]
  4. DETROL LA [Concomitant]
  5. IMIPRAMINE [Concomitant]
  6. PAXIL [Concomitant]
  7. ZOLOFT [Concomitant]

REACTIONS (2)
  - Thrombosis [Unknown]
  - Back pain [Unknown]
